FAERS Safety Report 13743025 (Version 1)
Quarter: 2017Q3

REPORT INFORMATION
  Report Type: Spontaneous
  Country: US (occurrence: US)
  Receive Date: 20170711
  Receipt Date: 20170711
  Transmission Date: 20171127
  Serious: No
  Sender: FDA-Public Use
  Company Number: US-LEXICON PHARMACEUTICALS, INC-17-1606-00400

PATIENT
  Age: 66 Year
  Sex: Female

DRUGS (20)
  1. TELOTRISTAT ETHYL [Suspect]
     Active Substance: TELOTRISTAT ETHYL
     Indication: CARCINOID SYNDROME
     Route: 048
     Dates: start: 201705, end: 201705
  2. HYDROXYCHLOROQUINE SULFATE. [Concomitant]
     Active Substance: HYDROXYCHLOROQUINE SULFATE
  3. NOVOLOG [Concomitant]
     Active Substance: INSULIN ASPART
  4. RANITIDINE. [Concomitant]
     Active Substance: RANITIDINE
  5. GABAPENTIN. [Concomitant]
     Active Substance: GABAPENTIN
  6. DULOXETINE. [Concomitant]
     Active Substance: DULOXETINE
  7. LOSARTAN POTASSIUM. [Concomitant]
     Active Substance: LOSARTAN POTASSIUM
  8. FLUCONAZOLE. [Concomitant]
     Active Substance: FLUCONAZOLE
  9. LEVOTHYROXINE. [Concomitant]
     Active Substance: LEVOTHYROXINE
  10. ALLOPURINOL. [Concomitant]
     Active Substance: ALLOPURINOL
  11. ALPRAZOLAM. [Concomitant]
     Active Substance: ALPRAZOLAM
  12. TELOTRISTAT ETHYL [Suspect]
     Active Substance: TELOTRISTAT ETHYL
     Route: 048
     Dates: start: 20170517, end: 20170519
  13. ONDANSETRON [Concomitant]
     Active Substance: ONDANSETRON
  14. PERCOCET [Concomitant]
     Active Substance: ACETAMINOPHEN\OXYCODONE HYDROCHLORIDE
  15. CALCITRIOL. [Concomitant]
     Active Substance: CALCITRIOL
  16. TRAMADOL. [Concomitant]
     Active Substance: TRAMADOL
  17. TOPIRAMATE. [Concomitant]
     Active Substance: TOPIRAMATE
  18. AMITRIPTYLINE [Concomitant]
     Active Substance: AMITRIPTYLINE
  19. CARVEDILOL. [Concomitant]
     Active Substance: CARVEDILOL
  20. ZOFRAN [Concomitant]
     Active Substance: ONDANSETRON HYDROCHLORIDE

REACTIONS (2)
  - Abdominal pain [Unknown]
  - Constipation [Unknown]

NARRATIVE: CASE EVENT DATE: 20170518
